FAERS Safety Report 9732632 (Version 2)
Quarter: 2014Q1

REPORT INFORMATION
  Report Type: Spontaneous
  Country: GB (occurrence: GB)
  Receive Date: 20131205
  Receipt Date: 20140121
  Transmission Date: 20141002
  Serious: Yes (Other)
  Sender: FDA-Public Use
  Company Number: GB-JNJFOC-20131118032

PATIENT
  Age: 26 Year
  Sex: Male
  Weight: 83 kg

DRUGS (9)
  1. REMICADE [Suspect]
     Indication: CROHN^S DISEASE
     Route: 042
     Dates: start: 201301
  2. DIAZEPAM [Concomitant]
     Route: 065
  3. FEXOFENADINE [Concomitant]
     Route: 065
  4. FOLIC ACID [Concomitant]
     Route: 065
  5. COLECALCIFEROL [Concomitant]
     Route: 065
  6. HYOSCINE BUTYLBROMIDE [Concomitant]
     Route: 065
  7. MOMETASONE [Concomitant]
     Route: 045
  8. PARACETAMOL [Concomitant]
     Route: 065
  9. PENTASA [Concomitant]
     Dosage: STRENGTH: 500 MG DOSE: ^2DF^
     Route: 065

REACTIONS (3)
  - Headache [Not Recovered/Not Resolved]
  - Paraesthesia [Not Recovered/Not Resolved]
  - Grand mal convulsion [Recovered/Resolved with Sequelae]
